FAERS Safety Report 13930505 (Version 1)
Quarter: 2017Q3

REPORT INFORMATION
  Report Type: Spontaneous
  Country: None (occurrence: FR)
  Receive Date: 20170901
  Receipt Date: 20170901
  Transmission Date: 20171127
  Serious: Yes (Hospitalization)
  Sender: FDA-Public Use
  Company Number: FR-MERZ NORTH AMERICA, INC.-17MRZ-00256

PATIENT
  Age: 50 Year
  Sex: Female

DRUGS (5)
  1. FORLAX (MACROGOL 4000) [Concomitant]
  2. LUTERAN (CHLORMADINONE) [Concomitant]
     Active Substance: CHLORMADINONE ACETATE
  3. INEXIUM (ESOMEPRAZOLE) [Concomitant]
     Active Substance: ESOMEPRAZOLE
  4. CALCIT VIT D3 1000MG/880IU (CALCIUM CARBONATE, CHOLECALCIFEROL) [Concomitant]
  5. ASCLERA [Suspect]
     Active Substance: POLIDOCANOL
     Indication: VARICOSE VEIN
     Dosage: 3 TIMES A YEAR
     Route: 042
     Dates: start: 2012

REACTIONS (4)
  - Myalgia [Unknown]
  - Granulomatous lymphadenitis [Unknown]
  - Asthenia [Unknown]
  - Arthralgia [Unknown]

NARRATIVE: CASE EVENT DATE: 201611
